FAERS Safety Report 25115858 (Version 5)
Quarter: 2025Q2

REPORT INFORMATION
  Report Type: Spontaneous
  Country: JP (occurrence: JP)
  Receive Date: 20250325
  Receipt Date: 20250630
  Transmission Date: 20250716
  Serious: Yes (Life-Threatening, Hospitalization)
  Sender: MERCK SHARP & DOHME LLC
  Company Number: JP-009507513-2266441

PATIENT
  Age: 82 Year
  Sex: Male
  Weight: 52 kg

DRUGS (11)
  1. BRIDION [Suspect]
     Active Substance: SUGAMMADEX SODIUM
     Indication: Neuromuscular blockade reversal
     Route: 065
  2. OLMESARTAN [Concomitant]
     Active Substance: OLMESARTAN
     Indication: Product used for unknown indication
     Route: 048
  3. AZELNIDIPINE [Concomitant]
     Active Substance: AZELNIDIPINE
     Indication: Product used for unknown indication
     Route: 048
  4. REMIFENTANIL HYDROCHLORIDE [Concomitant]
     Active Substance: REMIFENTANIL HYDROCHLORIDE
     Indication: Anaesthesia procedure
     Route: 065
  5. PROPOFOL [Concomitant]
     Active Substance: PROPOFOL
     Indication: Anaesthesia procedure
     Route: 065
  6. ROCURONIUM BROMIDE [Concomitant]
     Active Substance: ROCURONIUM BROMIDE
     Indication: Anaesthesia procedure
     Route: 065
  7. EPHEDRINE HYDROCHLORIDE [Concomitant]
     Active Substance: EPHEDRINE HYDROCHLORIDE
     Indication: Anaesthesia procedure
     Route: 065
  8. FENTANYL CITRATE [Concomitant]
     Active Substance: FENTANYL CITRATE
     Indication: Anaesthesia procedure
     Route: 042
  9. NOREPINEPHRINE BITARTRATE [Concomitant]
     Active Substance: NOREPINEPHRINE BITARTRATE
     Indication: Anaesthesia procedure
     Route: 065
  10. ACETAMINOPHEN [Concomitant]
     Active Substance: ACETAMINOPHEN
     Indication: Anaesthesia procedure
     Route: 065
  11. GRANISETRON HYDROCHLORIDE [Concomitant]
     Active Substance: GRANISETRON HYDROCHLORIDE
     Indication: Anaesthesia procedure
     Route: 065

REACTIONS (2)
  - Bradyarrhythmia [Recovering/Resolving]
  - Cardiac arrest [Recovering/Resolving]
